FAERS Safety Report 22734842 (Version 4)
Quarter: 2023Q4

REPORT INFORMATION
  Report Type: Report from Study
  Country: GB (occurrence: GB)
  Receive Date: 20230721
  Receipt Date: 20231215
  Transmission Date: 20240110
  Serious: Yes (Other)
  Sender: FDA-Public Use
  Company Number: GB-002147023-NVSC2023GB040622

PATIENT
  Age: 24 Year
  Sex: Male

DRUGS (2)
  1. KESIMPTA [Suspect]
     Active Substance: OFATUMUMAB
     Indication: Multiple sclerosis
     Dosage: 20 MG, QW
     Route: 058
     Dates: start: 20230214
  2. KESIMPTA [Suspect]
     Active Substance: OFATUMUMAB
     Indication: Relapsing-remitting multiple sclerosis
     Dosage: 20 MG, QMO
     Route: 058

REACTIONS (20)
  - Pneumonia [Unknown]
  - Kidney infection [Unknown]
  - Lower respiratory tract infection [Recovering/Resolving]
  - Dizziness [Unknown]
  - Fatigue [Unknown]
  - Musculoskeletal chest pain [Recovered/Resolved]
  - Somnolence [Recovered/Resolved]
  - Migraine [Recovering/Resolving]
  - Swelling [Unknown]
  - Herpes zoster [Unknown]
  - Infection [Unknown]
  - Sputum discoloured [Unknown]
  - Feeling hot [Unknown]
  - Headache [Unknown]
  - Cough [Unknown]
  - Chills [Unknown]
  - Nasopharyngitis [Recovered/Resolved]
  - Productive cough [Recovered/Resolved]
  - Headache [Recovered/Resolved]
  - Dizziness [Recovered/Resolved]

NARRATIVE: CASE EVENT DATE: 20230214
